FAERS Safety Report 12892018 (Version 1)
Quarter: 2016Q4

REPORT INFORMATION
  Report Type: Spontaneous
  Country: MT (occurrence: MT)
  Receive Date: 20161028
  Receipt Date: 20161028
  Transmission Date: 20170207
  Serious: Yes (Hospitalization, Disabling, Other)
  Sender: FDA-Public Use
  Company Number: MT-ABBVIE-16K-167-1724442-00

PATIENT
  Age: 57 Year
  Sex: Male
  Weight: 62.5 kg

DRUGS (7)
  1. CYCLOSPORIN A [Suspect]
     Active Substance: CYCLOSPORINE
     Indication: PRODUCT USED FOR UNKNOWN INDICATION
     Route: 065
     Dates: start: 1986, end: 2006
  2. HUMIRA [Suspect]
     Active Substance: ADALIMUMAB
     Indication: PSORIASIS
     Route: 058
     Dates: start: 20101212, end: 20140928
  3. HUMIRA [Suspect]
     Active Substance: ADALIMUMAB
     Indication: PSORIATIC ARTHROPATHY
     Route: 058
     Dates: start: 20150308
  4. ISONIAZID. [Concomitant]
     Active Substance: ISONIAZID
     Indication: PRODUCT USED FOR UNKNOWN INDICATION
     Dates: start: 20150209, end: 201512
  5. METHOTREXATE. [Suspect]
     Active Substance: METHOTREXATE
     Indication: PRODUCT USED FOR UNKNOWN INDICATION
     Route: 065
     Dates: start: 1986, end: 2006
  6. PYRIDOXINE [Concomitant]
     Active Substance: PYRIDOXINE
     Indication: PRODUCT USED FOR UNKNOWN INDICATION
     Dates: start: 20150209, end: 201512
  7. METHOTREXATE. [Suspect]
     Active Substance: METHOTREXATE
     Route: 065
     Dates: start: 201506, end: 201512

REACTIONS (12)
  - Basal cell carcinoma [Unknown]
  - Psoriatic arthropathy [Recovered/Resolved]
  - Mobility decreased [Recovered/Resolved]
  - Bladder transitional cell carcinoma stage II [Not Recovered/Not Resolved]
  - Prostate cancer stage III [Unknown]
  - Haematuria [Unknown]
  - Psoriatic arthropathy [Not Recovered/Not Resolved]
  - Bladder transitional cell carcinoma stage II [Recovered/Resolved]
  - Psoriasis [Not Recovered/Not Resolved]
  - Psoriasis [Recovered/Resolved]
  - Transitional cell carcinoma [Unknown]
  - Drug effect delayed [Unknown]

NARRATIVE: CASE EVENT DATE: 201310
